FAERS Safety Report 7673397-7 (Version None)
Quarter: 2011Q3

REPORT INFORMATION
  Report Type: 
  Country: None (occurrence: None)
  Receive Date: 20110810
  Receipt Date: 20110801
  Transmission Date: 20111222
  Serious: Yes (Other)
  Sender: FDA-Public Use
  Company Number: JP-JNJFOC-20110711739

PATIENT
  Sex: Female

DRUGS (3)
  1. STAYBLA [Concomitant]
     Indication: DYSURIA
     Route: 048
     Dates: start: 20110716
  2. LEVOFLOXACIN [Suspect]
     Indication: URINARY TRACT INFECTION
     Route: 048
     Dates: start: 20110716, end: 20110718
  3. UNKNOWN MEDICATION [Concomitant]
     Route: 065

REACTIONS (3)
  - RENAL IMPAIRMENT [None]
  - EXTRAPYRAMIDAL DISORDER [None]
  - OVERDOSE [None]
